FAERS Safety Report 4636393-X (Version None)
Quarter: 2005Q2

REPORT INFORMATION
  Report Type: 
  Country: None (occurrence: None)
  Receive Date: 20050415
  Receipt Date: 20050304
  Transmission Date: 20051028
  Serious: Yes (Death)
  Sender: FDA-Public Use
  Company Number: JP-ROCHE-398257

PATIENT
  Age: 58 Year
  Sex: Male

DRUGS (5)
  1. TAMIFLU [Suspect]
     Indication: INFLUENZA
     Route: 048
     Dates: start: 20050323, end: 20050325
  2. PL [Suspect]
     Indication: INFLUENZA
     Route: 048
     Dates: start: 20050223, end: 20050225
  3. CEFZON [Suspect]
     Indication: PHARYNGITIS
     Route: 048
     Dates: start: 20050223, end: 20050225
  4. UNASYN [Concomitant]
  5. KAKKON-TO [Concomitant]
     Route: 048

REACTIONS (1)
  - TOXIC EPIDERMAL NECROLYSIS [None]
